FAERS Safety Report 4828548-6 (Version None)
Quarter: 2005Q4

REPORT INFORMATION
  Report Type: 
  Country: None (occurrence: None)
  Receive Date: 20051115
  Receipt Date: 20051108
  Transmission Date: 20060501
  Serious: Yes (Hospitalization)
  Sender: FDA-Public Use
  Company Number: US-BRISTOL-MYERS SQUIBB COMPANY-13172531

PATIENT
  Age: 60 Year
  Sex: Male

DRUGS (4)
  1. COUMADIN [Suspect]
     Dosage: 7 MG THREE TIMES PER WEEK, 5 MG EVERY OTHER DAY = 41 MG PER WEEK
     Route: 048
  2. BYETTA [Suspect]
     Indication: DIABETES MELLITUS NON-INSULIN-DEPENDENT
     Route: 058
     Dates: start: 20050816, end: 20050909
  3. GLUCOPHAGE [Concomitant]
  4. ACTOS [Concomitant]

REACTIONS (7)
  - ANOREXIA [None]
  - DRUG TOXICITY [None]
  - GASTRITIS [None]
  - GASTROINTESTINAL HAEMORRHAGE [None]
  - HAEMOGLOBIN DECREASED [None]
  - MALAISE [None]
  - PROTHROMBIN TIME PROLONGED [None]
